FAERS Safety Report 9699868 (Version 2)
Quarter: 2013Q4

REPORT INFORMATION
  Report Type: Spontaneous
  Country: VE (occurrence: VE)
  Receive Date: 20131121
  Receipt Date: 20131202
  Transmission Date: 20140711
  Serious: No
  Sender: FDA-Public Use
  Company Number: VE-AMGEN-VENSP2013081480

PATIENT
  Age: 47 Year
  Sex: Female

DRUGS (1)
  1. ENBREL [Suspect]
     Indication: PSORIASIS
     Dosage: 25 MG, 2X/WEEK
     Route: 058
     Dates: start: 20131114

REACTIONS (2)
  - Feeling hot [Not Recovered/Not Resolved]
  - Limb discomfort [Not Recovered/Not Resolved]
